FAERS Safety Report 5664686-6 (Version None)
Quarter: 2008Q1

REPORT INFORMATION
  Report Type: 
  Country: None (occurrence: None)
  Receive Date: 20080314
  Receipt Date: 20080303
  Transmission Date: 20080703
  Serious: Yes (Other)
  Sender: FDA-Public Use
  Company Number: BR-ROCHE-551389

PATIENT

DRUGS (2)
  1. ROACUTAN [Suspect]
     Indication: ACNE
     Route: 064
     Dates: start: 20010101
  2. ROACUTAN [Suspect]
     Route: 064
     Dates: start: 20050101, end: 20071101

REACTIONS (2)
  - NO ADVERSE EVENT [None]
  - NORMAL NEWBORN [None]
